FAERS Safety Report 8493923 (Version 3)
Quarter: 2014Q2

REPORT INFORMATION
  Report Type: Report from Study
  Country: US (occurrence: US)
  Receive Date: 20120404
  Receipt Date: 20140522
  Transmission Date: 20141212
  Serious: Yes (Hospitalization)
  Sender: FDA-Public Use
  Company Number: US-ACTELION-A-US2012-63334

PATIENT
  Age: 75 Year
  Sex: Female

DRUGS (3)
  1. TRACLEER [Suspect]
     Indication: PULMONARY ARTERIAL HYPERTENSION
     Dosage: UNK
     Route: 048
     Dates: start: 20041102
  2. ADCIRCA [Concomitant]
  3. SILDENAFIL [Concomitant]

REACTIONS (4)
  - Blood potassium decreased [Unknown]
  - Dizziness [Unknown]
  - Hypotension [Unknown]
  - Muscle spasms [Unknown]
